FAERS Safety Report 9602034 (Version 2)
Quarter: 2013Q4

REPORT INFORMATION
  Report Type: Report from Study
  Country: DE (occurrence: DE)
  Receive Date: 20131007
  Receipt Date: 20131212
  Transmission Date: 20140711
  Serious: No
  Sender: FDA-Public Use
  Company Number: PHHY2013DE109133

PATIENT
  Sex: Male
  Weight: 84 kg

DRUGS (3)
  1. AMN107 [Suspect]
     Indication: CHRONIC MYELOID LEUKAEMIA
     Dosage: 800 MG, PER DAY
     Route: 048
     Dates: start: 20110801
  2. ALLOPURINOL [Concomitant]
     Dosage: 300 MG, UNK
     Dates: start: 20110926, end: 20111011
  3. CIPROBAY URO [Concomitant]
     Dates: start: 20110830, end: 20110905

REACTIONS (3)
  - Staphylococcal infection [Recovered/Resolved]
  - Skin irritation [Not Recovered/Not Resolved]
  - Impaired healing [Not Recovered/Not Resolved]
